FAERS Safety Report 6268192-X (Version None)
Quarter: 2009Q3

REPORT INFORMATION
  Report Type: 
  Country: None (occurrence: None)
  Receive Date: 20090714
  Receipt Date: 20090714
  Transmission Date: 20100115
  Serious: No
  Sender: FDA-Public Use
  Company Number: None

PATIENT
  Age: 53 Year
  Sex: Female
  Weight: 52.1637 kg

DRUGS (2)
  1. INVEGA [Suspect]
     Indication: BIPOLAR DISORDER
     Dosage: ONE A DAY
  2. IVEGA [Concomitant]

REACTIONS (4)
  - AGGRESSION [None]
  - ANGER [None]
  - HYPOTENSION [None]
  - IMPRISONMENT [None]
